FAERS Safety Report 11537673 (Version 1)
Quarter: 2015Q3

REPORT INFORMATION
  Report Type: Spontaneous
  Country: DE (occurrence: DE)
  Receive Date: 20150922
  Receipt Date: 20150922
  Transmission Date: 20151125
  Serious: Yes (Other)
  Sender: FDA-Public Use
  Company Number: GXKR2015DE004386

PATIENT

DRUGS (4)
  1. CITALOPRAM [Suspect]
     Active Substance: CITALOPRAM HYDROBROMIDE
     Indication: LISTLESS
  2. CITALOPRAM [Suspect]
     Active Substance: CITALOPRAM HYDROBROMIDE
     Indication: DIZZINESS
     Dosage: 20 MG, QD
     Route: 048
     Dates: end: 201504
  3. CITALOPRAM [Suspect]
     Active Substance: CITALOPRAM HYDROBROMIDE
     Indication: NAUSEA
  4. CITALOPRAM [Suspect]
     Active Substance: CITALOPRAM HYDROBROMIDE
     Indication: FEELING COLD

REACTIONS (5)
  - Cough [Unknown]
  - Mucous membrane disorder [Unknown]
  - Thoracic vertebral fracture [Unknown]
  - Vomiting [Unknown]
  - Eye haemorrhage [Unknown]
